FAERS Safety Report 11983058 (Version 6)
Quarter: 2016Q2

REPORT INFORMATION
  Report Type: Spontaneous
  Country: US (occurrence: US)
  Receive Date: 20160201
  Receipt Date: 20160531
  Transmission Date: 20160815
  Serious: Yes (Other)
  Sender: FDA-Public Use
  Company Number: US-PFIZER INC-2016046210

PATIENT
  Age: 77 Year
  Sex: Male
  Weight: 68 kg

DRUGS (6)
  1. SUTENT [Suspect]
     Active Substance: SUNITINIB MALATE
     Indication: GASTROINTESTINAL STROMAL TUMOUR
     Dosage: 37.5 MG (3 CAPSULES), DAILY
     Route: 048
     Dates: start: 20160119
  2. SUTENT [Suspect]
     Active Substance: SUNITINIB MALATE
     Dosage: 37.5 MG, CYCLIC (37.5MG QD X3 DAYS (WEEK 4)
     Dates: end: 20160527
  3. SUTENT [Suspect]
     Active Substance: SUNITINIB MALATE
     Dosage: 37.5 MG, DAILY
     Route: 048
  4. SUTENT [Suspect]
     Active Substance: SUNITINIB MALATE
     Dosage: 25 MG (2 CAPSULES), DAILY
     Route: 048
     Dates: start: 201602
  5. SUTENT [Suspect]
     Active Substance: SUNITINIB MALATE
     Dosage: 37.5 MG, DAILY (1 CAP DAILY)
     Route: 048
  6. SUTENT [Suspect]
     Active Substance: SUNITINIB MALATE
     Dosage: 25 MG, CYCLIC (25MG QD X 4 DAYS, WEEK 4)

REACTIONS (12)
  - Pneumonia [Unknown]
  - Asthenia [Unknown]
  - Headache [Unknown]
  - Liver function test increased [Unknown]
  - Diarrhoea [Unknown]
  - Muscle spasms [Unknown]
  - Mental status changes [Unknown]
  - Hepatic enzyme increased [Unknown]
  - White blood cell disorder [Unknown]
  - Constipation [Unknown]
  - Fatigue [Unknown]
  - Product use issue [Unknown]

NARRATIVE: CASE EVENT DATE: 20160119
